FAERS Safety Report 7653810-1 (Version None)
Quarter: 2011Q3

REPORT INFORMATION
  Report Type: 
  Country: None (occurrence: None)
  Receive Date: 20110728
  Receipt Date: 20100624
  Transmission Date: 20111222
  Serious: Yes (Other)
  Sender: FDA-Public Use
  Company Number: 2010SP035922

PATIENT
  Age: 51 Year
  Sex: Male

DRUGS (2)
  1. INTRON A [Suspect]
     Indication: MALIGNANT MELANOMA
     Dosage: 37.5 MG;QD;IV
     Route: 042
     Dates: end: 20100623
  2. INTRON A [Suspect]

REACTIONS (3)
  - SWOLLEN TONGUE [None]
  - TONGUE DISORDER [None]
  - GLOSSODYNIA [None]
